FAERS Safety Report 5400046-0 (Version None)
Quarter: 2007Q3

REPORT INFORMATION
  Report Type: 
  Country: None (occurrence: None)
  Receive Date: 20070725
  Receipt Date: 20070712
  Transmission Date: 20080115
  Serious: Yes (Other)
  Sender: FDA-Public Use
  Company Number: 2007P1000352

PATIENT

DRUGS (1)
  1. BUSULFAN (BUSULFAN) [Suspect]
     Indication: DRUG USE FOR UNKNOWN INDICATION
     Dosage: ; IV
     Route: 042

REACTIONS (1)
  - THROMBOTIC THROMBOCYTOPENIC PURPURA [None]
